FAERS Safety Report 8617630-3 (Version None)
Quarter: 2012Q3

REPORT INFORMATION
  Report Type: 
  Country: None (occurrence: None)
  Receive Date: 20120824
  Receipt Date: 20120131
  Transmission Date: 20120928
  Serious: No
  Sender: FDA-Public Use
  Company Number: US-ASTRAZENECA-2011SE74494

PATIENT
  Age: 69 Year
  Sex: Male
  Weight: 78.9 kg

DRUGS (3)
  1. NEXIUM [Suspect]
     Indication: HIATUS HERNIA
     Route: 048
  2. LITTLE WHITE PILL [Concomitant]
     Indication: DYSPNOEA
     Dosage: AT NIGHT
  3. SYMBICORT [Suspect]
     Dosage: 160/4.5 MCG, 120 INHALATIONS, BID
     Route: 055

REACTIONS (4)
  - HIATUS HERNIA [None]
  - DRUG DOSE OMISSION [None]
  - COUGH [None]
  - OFF LABEL USE [None]
